FAERS Safety Report 19091229 (Version 1)
Quarter: 2021Q2

REPORT INFORMATION
  Report Type: Spontaneous
  Country: US (occurrence: US)
  Receive Date: 20210405
  Receipt Date: 20210405
  Transmission Date: 20210717
  Serious: Yes (Other)
  Sender: FDA-Public Use
  Company Number: US-SUN PHARMACEUTICAL INDUSTRIES LTD-2021R1-289002

PATIENT
  Age: 26 Month

DRUGS (3)
  1. CLOBAZAM. [Suspect]
     Active Substance: CLOBAZAM
     Indication: CONDITION AGGRAVATED
     Dosage: UNK
     Route: 005
  2. TOPIRAMATE. [Suspect]
     Active Substance: TOPIRAMATE
     Indication: CONDITION AGGRAVATED
     Dosage: UNK
     Route: 048
  3. MAGNESIUM VALPROATE [Suspect]
     Active Substance: VALPROATE MAGNESIUM
     Indication: CONDITION AGGRAVATED
     Dosage: UNK
     Route: 048

REACTIONS (1)
  - Condition aggravated [Unknown]
